FAERS Safety Report 9641750 (Version 1)
Quarter: 2013Q4

REPORT INFORMATION
  Report Type: Spontaneous
  Country: GB (occurrence: None)
  Receive Date: 20131021
  Receipt Date: 20131021
  Transmission Date: 20140711
  Serious: Yes (Other)
  Sender: FDA-Public Use
  Company Number: KAD201310-001352

PATIENT
  Sex: Female

DRUGS (4)
  1. RIBAVIRIN [Suspect]
     Indication: HEPATITIS C
     Route: 048
     Dates: start: 20130103
  2. PEGINTERFERON ALFA-2B (PEGINTERFERON ALFA-2B) [Suspect]
     Indication: HEPATITIS C
     Dosage: ONCE A WEEK
     Dates: start: 20130103
  3. INCIVO (TELAPREVIR) [Suspect]
     Indication: HEPATITIS C
     Route: 048
     Dates: start: 20130103
  4. NYSTATIN [Concomitant]

REACTIONS (7)
  - Oral candidiasis [None]
  - Pruritus [None]
  - Constipation [None]
  - Haemorrhoids [None]
  - Pain [None]
  - Mastication disorder [None]
  - Dysphagia [None]
